FAERS Safety Report 5662051-9 (Version None)
Quarter: 2008Q1

REPORT INFORMATION
  Report Type: 
  Country: None (occurrence: None)
  Receive Date: 20080312
  Receipt Date: 20080303
  Transmission Date: 20080703
  Serious: Yes (Hospitalization)
  Sender: FDA-Public Use
  Company Number: DE-ELI_LILLY_AND_COMPANY-DE200803000412

PATIENT
  Sex: Female
  Weight: 60 kg

DRUGS (5)
  1. CYMBALTA [Suspect]
     Dosage: 1680 MG, 28X60 MG AT ONCE
     Route: 048
     Dates: start: 20080101, end: 20080101
  2. ALCOHOL [Concomitant]
     Dosage: UNK, UNKNOWN
     Route: 048
     Dates: start: 20080101, end: 20080101
  3. DOXEPIN DURA [Concomitant]
     Dosage: 1250 MG, 50X25MG AT ONCE
     Route: 048
     Dates: start: 20080101, end: 20080101
  4. DOXEPIN DURA [Concomitant]
     Dosage: 5000 MG, 100X50MG AT ONCE
     Route: 048
     Dates: start: 20080101
  5. GABAPENTIN [Concomitant]
     Dosage: 40000 MG, 100X400MG AT ONCE
     Route: 048
     Dates: start: 20080101, end: 20080101

REACTIONS (5)
  - DISORIENTATION [None]
  - INTENTIONAL OVERDOSE [None]
  - SOMNOLENCE [None]
  - STOMATITIS NECROTISING [None]
  - SUICIDE ATTEMPT [None]
